FAERS Safety Report 5926606-6 (Version None)
Quarter: 2008Q4

REPORT INFORMATION
  Report Type: 
  Country: None (occurrence: None)
  Receive Date: 20081022
  Receipt Date: 20081020
  Transmission Date: 20090506
  Serious: Yes (Hospitalization)
  Sender: FDA-Public Use
  Company Number: A0752533A

PATIENT
  Age: 16 Year
  Sex: Male

DRUGS (3)
  1. LAMOTRIGINE [Suspect]
     Indication: BIPOLAR DISORDER
     Dosage: 50MG PER DAY
     Route: 048
     Dates: end: 20080811
  2. LAMICTAL [Suspect]
     Indication: BIPOLAR DISORDER
     Dosage: 25MG PER DAY
     Route: 048
     Dates: start: 20080717
  3. ZOLOFT [Concomitant]

REACTIONS (9)
  - ASTHENIA [None]
  - COUGH [None]
  - EPISTAXIS [None]
  - FATIGUE [None]
  - PYREXIA [None]
  - RASH [None]
  - SKIN DISCOLOURATION [None]
  - STEVENS-JOHNSON SYNDROME [None]
  - WHEEZING [None]
